FAERS Safety Report 4368641-8 (Version None)
Quarter: 2004Q2

REPORT INFORMATION
  Report Type: 
  Country: None (occurrence: None)
  Receive Date: 20040525
  Receipt Date: 20040512
  Transmission Date: 20050107
  Serious: Yes (Hospitalization)
  Sender: FDA-Public Use
  Company Number: 04P-151-0260825-00

PATIENT
  Age: 54 Year
  Sex: Female

DRUGS (4)
  1. DEPAKENE [Suspect]
     Indication: BIPOLAR DISORDER
     Dosage: 2000 MG, 1 IN 1 D, PER ORAL
     Route: 048
     Dates: end: 20040310
  2. DEPAKENE [Suspect]
     Indication: BIPOLAR DISORDER
     Dosage: 2000 MG, 1 IN 1 D, PER ORAL
     Route: 048
     Dates: start: 20040310, end: 20040322
  3. CITALOPRAM HYDROBROMIDE [Suspect]
     Indication: DEPRESSION
     Dosage: 20 MG, 5 IN 1 D, PER ORAL
     Route: 048
     Dates: end: 20040310
  4. CITALOPRAM HYDROBROMIDE [Suspect]
     Indication: DEPRESSION
     Dosage: 20 MG, 5 IN 1 D, PER ORAL
     Route: 048
     Dates: start: 20040310, end: 20040322

REACTIONS (15)
  - ANAEMIA [None]
  - APATHY [None]
  - ASTHENIA [None]
  - BIPOLAR DISORDER [None]
  - CACHEXIA [None]
  - COAGULATION FACTOR DECREASED [None]
  - DISORIENTATION [None]
  - DRUG INEFFECTIVE [None]
  - GENERAL PHYSICAL HEALTH DETERIORATION [None]
  - HEPATIC STEATOSIS [None]
  - HEPATOCELLULAR DAMAGE [None]
  - HYPERCHOLESTEROLAEMIA [None]
  - HYPOCALCAEMIA [None]
  - HYPOVITAMINOSIS [None]
  - TREATMENT NONCOMPLIANCE [None]
